FAERS Safety Report 16278951 (Version 1)
Quarter: 2019Q2

REPORT INFORMATION
  Report Type: Spontaneous
  Country: GB (occurrence: GB)
  Receive Date: 20190506
  Receipt Date: 20190506
  Transmission Date: 20190711
  Serious: Yes (Hospitalization)
  Sender: FDA-Public Use
  Company Number: GB-ACTELION-A-US2019-190036

PATIENT
  Sex: Female

DRUGS (2)
  1. VENTAVIS [Suspect]
     Active Substance: ILOPROST
     Indication: PULMONARY HYPERTENSION
     Dosage: 5 MCG, 6 TIMES PER DAY
     Route: 055
     Dates: start: 20080319
  2. SILDENAFIL. [Concomitant]
     Active Substance: SILDENAFIL

REACTIONS (1)
  - Hospitalisation [Unknown]
